FAERS Safety Report 7345206-7 (Version None)
Quarter: 2011Q1

REPORT INFORMATION
  Report Type: 
  Country: None (occurrence: None)
  Receive Date: 20110310
  Receipt Date: 20110303
  Transmission Date: 20110831
  Serious: Yes (Hospitalization)
  Sender: FDA-Public Use
  Company Number: US-US-EMD SERONO, INC.-233915J09USA

PATIENT
  Sex: Female
  Weight: 58 kg

DRUGS (13)
  1. VALTREX [Suspect]
     Indication: ORAL HERPES
  2. BACLOFEN [Concomitant]
     Indication: MUSCLE SPASMS
  3. TRAZODONE HCL [Suspect]
  4. PAROXETINE [Concomitant]
     Indication: ANXIETY
  5. REBIF [Suspect]
     Route: 058
     Dates: start: 20090101
  6. REBIF [Suspect]
     Route: 058
     Dates: start: 20090101, end: 20091101
  7. TEGRETOL [Suspect]
  8. REBIF [Suspect]
     Indication: RELAPSING-REMITTING MULTIPLE SCLEROSIS
     Route: 058
     Dates: start: 20091009, end: 20090101
  9. PROPYLTHIOURACIL [Suspect]
  10. PROPRANOLOL [Concomitant]
     Indication: HEART RATE IRREGULAR
     Dates: start: 20090501
  11. UNSPECIFIED MEDICATIONS [Concomitant]
     Indication: HEART RATE IRREGULAR
     Dates: end: 20090101
  12. DICLOFENAC [Suspect]
  13. IBUPROFEN [Concomitant]
     Indication: PREMEDICATION

REACTIONS (6)
  - FEELING OF BODY TEMPERATURE CHANGE [None]
  - MULTIPLE SCLEROSIS RELAPSE [None]
  - LEUKOPENIA [None]
  - GAIT DISTURBANCE [None]
  - FALL [None]
  - PAIN [None]
